FAERS Safety Report 8790395 (Version 2)
Quarter: 2013Q4

REPORT INFORMATION
  Report Type: Spontaneous
  Country: US (occurrence: US)
  Receive Date: 20120917
  Receipt Date: 20131101
  Transmission Date: 20140711
  Serious: No
  Sender: FDA-Public Use
  Company Number: US-009507513-1208USA000218

PATIENT
  Sex: Male

DRUGS (1)
  1. EMEND [Suspect]
     Route: 042

REACTIONS (2)
  - Infusion related reaction [Recovered/Resolved]
  - Infusion site pain [Recovered/Resolved]
